FAERS Safety Report 16042365 (Version 3)
Quarter: 2019Q2

REPORT INFORMATION
  Report Type: Spontaneous
  Country: PL (occurrence: PL)
  Receive Date: 20190306
  Receipt Date: 20190524
  Transmission Date: 20190711
  Serious: Yes (Hospitalization)
  Sender: FDA-Public Use
  Company Number: PL-TEVA-2019-PL-1020829

PATIENT
  Age: 35 Year
  Sex: Male

DRUGS (2)
  1. BETASERC [Concomitant]
     Active Substance: BETAHISTINE
     Indication: BALANCE DISORDER
     Dates: start: 201902
  2. ENTECAVIR TEVA [Suspect]
     Active Substance: ENTECAVIR
     Indication: HEPATITIS B
     Dosage: .5 MILLIGRAM DAILY;
     Route: 065
     Dates: start: 201812, end: 201902

REACTIONS (4)
  - Balance disorder [Not Recovered/Not Resolved]
  - Auditory disorder [Not Recovered/Not Resolved]
  - Vomiting [Recovered/Resolved]
  - Vertigo [Not Recovered/Not Resolved]

NARRATIVE: CASE EVENT DATE: 201812
